FAERS Safety Report 11252424 (Version 1)
Quarter: 2015Q3

REPORT INFORMATION
  Report Type: Spontaneous
  Country: US (occurrence: US)
  Receive Date: 20150708
  Receipt Date: 20150708
  Transmission Date: 20151125
  Serious: No
  Sender: FDA-Public Use
  Company Number: CHPA2015US008216

PATIENT
  Age: 68 Year
  Sex: Male

DRUGS (2)
  1. COUMADIN [Concomitant]
     Active Substance: WARFARIN SODIUM
     Dosage: 5MG AND 2 1/2MG, ALTERNATING THEM BY THE DAY
     Dates: start: 1992
  2. VOLTAREN [Suspect]
     Active Substance: DICLOFENAC SODIUM
     Indication: PRODUCT USED FOR UNKNOWN INDICATION
     Dosage: A LITTLE DAB ON FINGERS, QD
     Route: 061

REACTIONS (4)
  - Accidental exposure to product [Unknown]
  - International normalised ratio increased [Recovering/Resolving]
  - Blood urine present [Unknown]
  - Dysgeusia [Unknown]

NARRATIVE: CASE EVENT DATE: 201506
